FAERS Safety Report 8291349-3 (Version None)
Quarter: 2012Q2

REPORT INFORMATION
  Report Type: 
  Country: None (occurrence: None)
  Receive Date: 20120417
  Receipt Date: 20110610
  Transmission Date: 20120825
  Serious: Yes (Hospitalization)
  Sender: FDA-Public Use
  Company Number: US-GLAXOSMITHKLINE-A0934280A

PATIENT
  Sex: Male

DRUGS (1)
  1. AVANDIA [Suspect]
     Indication: DIABETES MELLITUS
     Dosage: 8MG TWICE PER DAY
     Route: 048
     Dates: start: 19990101, end: 20070401

REACTIONS (5)
  - MYOCARDIAL INFARCTION [None]
  - IMPLANTABLE DEFIBRILLATOR INSERTION [None]
  - STENT PLACEMENT [None]
  - CARDIAC ASSISTANCE DEVICE USER [None]
  - CARDIAC FAILURE CONGESTIVE [None]
